FAERS Safety Report 7014157-X (Version None)
Quarter: 2010Q3

REPORT INFORMATION
  Report Type: 
  Country: None (occurrence: None)
  Receive Date: 20100927
  Receipt Date: 20100917
  Transmission Date: 20110219
  Serious: Yes (Other)
  Sender: FDA-Public Use
  Company Number: ES-JNJFOC-20100902067

PATIENT
  Age: 39 Year
  Sex: Female
  Weight: 90 kg

DRUGS (4)
  1. STELARA [Suspect]
     Indication: PUSTULAR PSORIASIS
     Route: 058
  2. STELARA [Suspect]
     Route: 058
  3. NEOTIGASON [Concomitant]
     Indication: PUSTULAR PSORIASIS
  4. NEOTIGASON [Concomitant]

REACTIONS (1)
  - URTICARIA [None]
